FAERS Safety Report 9758664 (Version 1)
Quarter: 2013Q4

REPORT INFORMATION
  Report Type: Spontaneous
  Country: US (occurrence: None)
  Receive Date: 20131216
  Receipt Date: 20131216
  Transmission Date: 20140711
  Serious: Yes (Hospitalization, Other)
  Sender: FDA-Public Use
  Company Number: RB-46912-2012

PATIENT
  Age: 55 Year
  Sex: Female
  Weight: 72.58 kg

DRUGS (4)
  1. SUBOXONE (8 MG, 8 MG) [Suspect]
     Indication: DRUG DEPENDENCE
  2. SUBOXONE [Suspect]
     Indication: DRUG DEPENDENCE
     Dosage: (8 MG SUBLINGUAL), (8 MG SUBLINGUAL), (8 MG SUBLINGUAL)
  3. KLONOPIN [Concomitant]
  4. ZOLOFT [Concomitant]

REACTIONS (5)
  - Wrong technique in drug usage process [None]
  - Swollen tongue [None]
  - Tongue blistering [None]
  - Decreased appetite [None]
  - Weight increased [None]
